FAERS Safety Report 12110259 (Version 1)
Quarter: 2016Q1

REPORT INFORMATION
  Report Type: Spontaneous
  Country: US (occurrence: None)
  Receive Date: 20160223
  Receipt Date: 20160223
  Transmission Date: 20160526
  Serious: No
  Sender: FDA-Public Use
  Company Number: None

PATIENT
  Age: 49 Year
  Sex: Female

DRUGS (1)
  1. TASIGNA [Suspect]
     Active Substance: NILOTINIB
     Indication: MYELOID LEUKAEMIA
     Dosage: 150MG 2 CAP BID ORAL
     Route: 048
     Dates: start: 20151215

REACTIONS (3)
  - Neuropathy peripheral [None]
  - Drug dose omission [None]
  - Alopecia [None]

NARRATIVE: CASE EVENT DATE: 20160205
